FAERS Safety Report 17483777 (Version 3)
Quarter: 2020Q2

REPORT INFORMATION
  Report Type: Spontaneous
  Country: DE (occurrence: DE)
  Receive Date: 20200302
  Receipt Date: 20200615
  Transmission Date: 20200713
  Serious: Yes (Death, Hospitalization, Other)
  Sender: FDA-Public Use
  Company Number: DE-EMD SERONO-E2B_90075312

PATIENT
  Age: 35 Year
  Sex: Male
  Weight: 160 kg

DRUGS (3)
  1. TRULICITY [Suspect]
     Active Substance: DULAGLUTIDE
     Indication: TYPE 2 DIABETES MELLITUS
     Dosage: SOLUTION FOR INJECTION IN PRE-FILLED PEN
     Route: 065
     Dates: start: 20191202
  2. METFORMIN [Suspect]
     Active Substance: METFORMIN HYDROCHLORIDE
     Indication: TYPE 2 DIABETES MELLITUS
     Dates: start: 20191202
  3. JARDIANCE [Suspect]
     Active Substance: EMPAGLIFLOZIN
     Indication: DIABETES MELLITUS INADEQUATE CONTROL
     Route: 048
     Dates: start: 20191202, end: 20191206

REACTIONS (5)
  - Lactic acidosis [Fatal]
  - General physical health deterioration [Unknown]
  - Pneumonia aspiration [Fatal]
  - Acute respiratory distress syndrome [Fatal]
  - Disturbance in attention [Unknown]

NARRATIVE: CASE EVENT DATE: 20191206
